FAERS Safety Report 24700483 (Version 1)
Quarter: 2024Q4

REPORT INFORMATION
  Report Type: Spontaneous
  Country: IN (occurrence: IN)
  Receive Date: 20241205
  Receipt Date: 20241205
  Transmission Date: 20250114
  Serious: Yes (Death, Hospitalization, Other)
  Sender: Steriscience PTE
  Company Number: IN-STERISCIENCE B.V.-2024-ST-002047

PATIENT
  Age: 70 Year
  Sex: Male

DRUGS (8)
  1. PIPERACILLIN SODIUM\TAZOBACTAM SODIUM [Suspect]
     Active Substance: PIPERACILLIN SODIUM\TAZOBACTAM SODIUM
     Indication: Endophthalmitis
     Dosage: UNK
     Route: 065
  2. PIPERACILLIN SODIUM\TAZOBACTAM SODIUM [Suspect]
     Active Substance: PIPERACILLIN SODIUM\TAZOBACTAM SODIUM
     Indication: Klebsiella infection
  3. MEROPENEM [Suspect]
     Active Substance: MEROPENEM
     Indication: Endophthalmitis
     Dosage: UNK
     Route: 065
  4. MEROPENEM [Suspect]
     Active Substance: MEROPENEM
     Indication: Klebsiella infection
  5. IMIPENEM [Suspect]
     Active Substance: IMIPENEM
     Indication: Endophthalmitis
     Dosage: UNK
     Route: 031
  6. IMIPENEM [Suspect]
     Active Substance: IMIPENEM
     Indication: Klebsiella infection
  7. AMIKACIN [Suspect]
     Active Substance: AMIKACIN
     Indication: Endophthalmitis
     Dosage: UNK
     Route: 031
  8. AMIKACIN [Suspect]
     Active Substance: AMIKACIN
     Indication: Klebsiella infection

REACTIONS (1)
  - Drug ineffective [Fatal]
